FAERS Safety Report 6517966-6 (Version None)
Quarter: 2009Q4

REPORT INFORMATION
  Report Type: 
  Country: None (occurrence: None)
  Receive Date: 20091224
  Receipt Date: 20091214
  Transmission Date: 20100525
  Serious: Yes (Hospitalization)
  Sender: FDA-Public Use
  Company Number: FR-JNJFOC-20091206592

PATIENT
  Sex: Male

DRUGS (7)
  1. IXPRIM [Suspect]
     Indication: OVERDOSE
     Route: 048
  2. IXPRIM [Suspect]
     Indication: DENTAL CARE
     Route: 048
  3. KLIPAL [Suspect]
     Indication: OVERDOSE
     Route: 048
  4. KLIPAL [Suspect]
     Indication: DENTAL CARE
     Route: 048
  5. OTHER DRUGS (UNSPECIFIED) [Suspect]
     Indication: OVERDOSE
  6. ATARAX [Concomitant]
  7. LEXOMIL [Concomitant]

REACTIONS (3)
  - CYTOLYTIC HEPATITIS [None]
  - INTENTIONAL OVERDOSE [None]
  - RHABDOMYOLYSIS [None]
